FAERS Safety Report 10133308 (Version 1)
Quarter: 2014Q2

REPORT INFORMATION
  Report Type: Spontaneous
  Country: US (occurrence: US)
  Receive Date: 20140428
  Receipt Date: 20140428
  Transmission Date: 20141212
  Serious: No
  Sender: FDA-Public Use
  Company Number: US-PFIZER INC-2014115206

PATIENT
  Age: 64 Year
  Sex: Female
  Weight: 72.11 kg

DRUGS (5)
  1. GABAPENTIN [Suspect]
     Indication: NEURALGIA
     Dosage: 300 MG, 1X/DAY
     Route: 048
     Dates: start: 201403, end: 2014
  2. GABAPENTIN [Suspect]
     Dosage: 300 MG, 2X/DAY
     Route: 048
     Dates: start: 2014, end: 201404
  3. XANAX [Concomitant]
     Indication: ANXIETY
     Dosage: UNK
  4. XANAX [Concomitant]
     Indication: DEPRESSION
  5. HYDROCODONE [Concomitant]
     Indication: PAIN
     Dosage: UNK

REACTIONS (1)
  - Palpitations [Unknown]
